FAERS Safety Report 15889594 (Version 1)
Quarter: 2019Q1

REPORT INFORMATION
  Report Type: Spontaneous
  Country: US (occurrence: US)
  Receive Date: 20190107
  Receipt Date: 20190107
  Transmission Date: 20190417
  Serious: Yes (Other)
  Sender: FDA-Public Use
  Company Number: None

PATIENT
  Age: 64 Year
  Sex: Male
  Weight: 111.2 kg

DRUGS (1)
  1. YESCARTA [Suspect]
     Active Substance: AXICABTAGENE CILOLEUCEL
     Indication: DIFFUSE LARGE B-CELL LYMPHOMA
     Route: 042

REACTIONS (6)
  - Cytokine release syndrome [None]
  - Drug ineffective [None]
  - Stem cell transplant [None]
  - Pyrexia [None]
  - Aphasia [None]
  - Neurotoxicity [None]

NARRATIVE: CASE EVENT DATE: 20181217
